FAERS Safety Report 13279783 (Version 1)
Quarter: 2017Q1

REPORT INFORMATION
  Report Type: Spontaneous
  Country: US (occurrence: US)
  Receive Date: 20170228
  Receipt Date: 20170228
  Transmission Date: 20170428
  Serious: Yes (Other)
  Sender: FDA-Public Use
  Company Number: None

PATIENT
  Age: 8 Year
  Sex: Female
  Weight: 23.85 kg

DRUGS (15)
  1. CARAFATE [Concomitant]
     Active Substance: SUCRALFATE
  2. MIRALAX [Suspect]
     Active Substance: POLYETHYLENE GLYCOL 3350
     Indication: CONSTIPATION
     Dosage: QUANTITY: .33 CAP;?
     Route: 048
  3. PREVACID [Concomitant]
     Active Substance: LANSOPRAZOLE
  4. BETHANOCHOL [Concomitant]
  5. DEKAS PLUS [Concomitant]
  6. VITAMIN D3 [Concomitant]
     Active Substance: CHOLECALCIFEROL
  7. HYPERTONIC SALINE [Concomitant]
     Active Substance: SODIUM CHLORIDE
  8. ZENPEP [Concomitant]
     Active Substance: PANCRELIPASE AMYLASE\PANCRELIPASE LIPASE\PANCRELIPASE PROTEASE
  9. PROAIR HFA [Concomitant]
     Active Substance: ALBUTEROL SULFATE
  10. MONTELUKAST [Concomitant]
     Active Substance: MONTELUKAST SODIUM
  11. PULMOZYME [Concomitant]
     Active Substance: DORNASE ALFA
  12. SINGULAIR [Concomitant]
     Active Substance: MONTELUKAST SODIUM
  13. PROBIOTIC [Concomitant]
     Active Substance: PROBIOTICS NOS
  14. QVAR [Concomitant]
     Active Substance: BECLOMETHASONE DIPROPIONATE
  15. AZITHROMYCIN ANHYDROUS. [Concomitant]
     Active Substance: AZITHROMYCIN ANHYDROUS

REACTIONS (4)
  - Suicidal ideation [None]
  - Feeling abnormal [None]
  - Depression [None]
  - Incorrect drug administration duration [None]

NARRATIVE: CASE EVENT DATE: 20160603
